FAERS Safety Report 10070799 (Version 2)
Quarter: 2014Q2

REPORT INFORMATION
  Report Type: Spontaneous
  Country: BR (occurrence: BR)
  Receive Date: 20140410
  Receipt Date: 20140410
  Transmission Date: 20141212
  Serious: Yes (Hospitalization)
  Sender: FDA-Public Use
  Company Number: BR-JNJFOC-20131007966

PATIENT
  Age: 12 Year
  Sex: Male
  Weight: 26 kg

DRUGS (8)
  1. REMICADE [Suspect]
     Indication: CROHN^S DISEASE
     Route: 042
     Dates: start: 20140102
  2. REMICADE [Suspect]
     Indication: CROHN^S DISEASE
     Route: 042
     Dates: start: 201306
  3. REMICADE [Suspect]
     Indication: CROHN^S DISEASE
     Route: 042
     Dates: start: 201112
  4. AZATHIOPRINE [Concomitant]
     Indication: CROHN^S DISEASE
     Route: 065
  5. MESALAZINE [Concomitant]
     Indication: CROHN^S DISEASE
     Route: 065
  6. CALCIUM [Concomitant]
     Indication: BONE DISORDER
     Route: 065
  7. FOLIC ACID [Concomitant]
     Indication: ANAEMIA
     Route: 065
  8. IRON [Concomitant]
     Indication: ANAEMIA
     Route: 065

REACTIONS (5)
  - Investigation [Not Recovered/Not Resolved]
  - Off label use [Not Recovered/Not Resolved]
  - Inappropriate schedule of drug administration [Recovered/Resolved]
  - Crohn^s disease [Recovered/Resolved]
  - Weight decreased [Unknown]
